FAERS Safety Report 7532616-8 (Version None)
Quarter: 2011Q2

REPORT INFORMATION
  Report Type: 
  Country: None (occurrence: None)
  Receive Date: 20110608
  Receipt Date: 20110602
  Transmission Date: 20111010
  Serious: Yes (Death, Hospitalization, Other)
  Sender: FDA-Public Use
  Company Number: PHHY2011US45501

PATIENT
  Sex: Male
  Weight: 86 kg

DRUGS (11)
  1. EXJADE [Suspect]
     Indication: MYELODYSPLASTIC SYNDROME
     Dosage: 1500 MG, QD
     Route: 048
     Dates: start: 20080925, end: 20081201
  2. EXJADE [Suspect]
     Indication: NEOPLASM MALIGNANT
     Dosage: 1500 MG, DAILY
     Route: 048
     Dates: start: 20090504
  3. FOLIC ACID [Concomitant]
     Dosage: DAILY
  4. ZEMPLAR [Concomitant]
     Dosage: 1 MG, UNK
     Route: 048
  5. METHOTREXATE [Concomitant]
     Dosage: ONCE WEEKLY
     Dates: start: 20090501
  6. GLYBURIDE [Concomitant]
     Dosage: 6 MG, UNK
     Route: 048
  7. LOVENOX [Concomitant]
     Dosage: 40 MG, UNK
  8. METFORMIN HCL [Concomitant]
     Dosage: 1000 MG, UNK
     Route: 048
  9. ASPIRIN [Concomitant]
     Dosage: 325 MG, UNK
     Route: 048
  10. REVLIMID [Concomitant]
     Dosage: 5 MG, DAILY
     Route: 048
  11. LISINOPRIL [Concomitant]
     Dosage: 10 MG, UNK
     Route: 048

REACTIONS (16)
  - NEOPLASM PROGRESSION [None]
  - ATRIOVENTRICULAR BLOCK COMPLETE [None]
  - BLOOD PRESSURE INCREASED [None]
  - RENAL FAILURE CHRONIC [None]
  - CORONARY ARTERY DISEASE [None]
  - NEOPLASM MALIGNANT [None]
  - APNOEA [None]
  - OCCULT BLOOD POSITIVE [None]
  - CERVICAL SPINAL STENOSIS [None]
  - CARDIAC MURMUR [None]
  - CELLULITIS [None]
  - LYMPHOCYTOSIS [None]
  - RESTLESS LEGS SYNDROME [None]
  - MUSCULAR WEAKNESS [None]
  - FATIGUE [None]
  - ARTHRALGIA [None]
